FAERS Safety Report 10913219 (Version 5)
Quarter: 2015Q3

REPORT INFORMATION
  Report Type: Report from Study
  Country: JP (occurrence: JP)
  Receive Date: 20150313
  Receipt Date: 20150714
  Transmission Date: 20151125
  Serious: Yes (Other)
  Sender: FDA-Public Use
  Company Number: JP-MUNDIPHARMA DS AND PHARMACOVIGILANCE-GBR-2015-0026234

PATIENT
  Age: 81 Year
  Sex: Male
  Weight: 58 kg

DRUGS (12)
  1. BTDS PATCH [Suspect]
     Active Substance: BUPRENORPHINE
     Indication: ANALGESIC THERAPY
     Dosage: 10 MCG, Q1H
     Route: 062
     Dates: start: 20141014, end: 20141024
  2. PRIMPERAN [Concomitant]
     Active Substance: METOCLOPRAMIDE HYDROCHLORIDE
     Indication: PROPHYLAXIS
     Dosage: 15 MG, DAILY
     Route: 048
     Dates: start: 20140922, end: 20140929
  3. ADOFEED [Concomitant]
     Active Substance: FLURBIPROFEN
     Indication: BACK PAIN
     Dosage: 2 DF, DAILY
     Route: 061
     Dates: start: 20141017, end: 20141024
  4. BTDS PATCH [Suspect]
     Active Substance: BUPRENORPHINE
     Dosage: 5 MCG, Q1H
     Route: 062
     Dates: start: 20141006, end: 20141013
  5. BTDS PATCH [Suspect]
     Active Substance: BUPRENORPHINE
     Dosage: 5 MCG, Q1H
     Route: 062
     Dates: start: 20140922, end: 20140929
  6. NEO VITACAIN                       /01127401/ [Concomitant]
     Indication: BACK PAIN
     Dosage: 10 ML, WEEKLY
     Route: 042
     Dates: start: 20140922
  7. CELECOX [Concomitant]
     Active Substance: CELECOXIB
     Indication: BACK PAIN
     Dosage: 200 MG, DAILY
     Route: 048
     Dates: start: 20140922, end: 20141006
  8. XYLOCAINE [Concomitant]
     Active Substance: LIDOCAINE HYDROCHLORIDE
     Indication: BACK PAIN
     Dosage: 10 ML, WEEKLY
     Route: 042
     Dates: start: 20140922
  9. MAGLAX [Concomitant]
     Active Substance: MAGNESIUM OXIDE
     Indication: PROPHYLAXIS
     Dosage: 990 MG, DAILY
     Route: 048
     Dates: start: 20141010, end: 20141024
  10. LAXOBERON [Concomitant]
     Active Substance: SODIUM PICOSULFATE
     Indication: PROPHYLAXIS
     Dosage: 5 DF, PRN
     Route: 048
     Dates: start: 20141010, end: 20141024
  11. NAPAGELN [Concomitant]
     Indication: BACK PAIN
     Dosage: UNK
     Route: 061
     Dates: start: 20141010, end: 20141024
  12. GASLON [Concomitant]
     Active Substance: IRSOGLADINE MALEATE
     Indication: PROPHYLAXIS
     Dosage: 4 MG, DAILY
     Route: 048
     Dates: start: 20140922, end: 20141006

REACTIONS (4)
  - Dizziness [Recovered/Resolved]
  - Headache [Recovering/Resolving]
  - Deafness [Recovering/Resolving]
  - Thirst [Recovering/Resolving]

NARRATIVE: CASE EVENT DATE: 20140929
